FAERS Safety Report 10254512 (Version 2)
Quarter: 2014Q2

REPORT INFORMATION
  Report Type: Spontaneous
  Country: US (occurrence: US)
  Receive Date: 20140624
  Receipt Date: 20140624
  Transmission Date: 20141212
  Serious: Yes (Hospitalization)
  Sender: FDA-Public Use
  Company Number: US-ROCHE-1397536

PATIENT
  Sex: Male

DRUGS (4)
  1. PEGASYS [Suspect]
     Indication: CHRONIC HEPATITIS C
     Route: 058
     Dates: start: 20140422
  2. RIBAVIRIN [Suspect]
     Indication: CHRONIC HEPATITIS C
     Dosage: IN DIVIDED DOSES
     Route: 048
     Dates: start: 20140422
  3. SOVALDI [Suspect]
     Indication: CHRONIC HEPATITIS C
     Dosage: FOR 12 WEEKS
     Route: 065
     Dates: start: 20140422
  4. PRISTIQ [Concomitant]
     Route: 065

REACTIONS (6)
  - Pneumonia [Unknown]
  - Vertigo [Unknown]
  - Photopsia [Unknown]
  - Fall [Unknown]
  - Loss of consciousness [Unknown]
  - Asthenia [Unknown]
